FAERS Safety Report 18182468 (Version 1)
Quarter: 2020Q3

REPORT INFORMATION
  Report Type: Spontaneous
  Country: CN (occurrence: CN)
  Receive Date: 20200821
  Receipt Date: 20200821
  Transmission Date: 20201103
  Serious: Yes (Other)
  Sender: FDA-Public Use
  Company Number: CN-ASTRAZENECA-2020SF04351

PATIENT
  Age: 25979 Day
  Sex: Male
  Weight: 75 kg

DRUGS (1)
  1. BRILINTA [Suspect]
     Active Substance: TICAGRELOR
     Indication: ANGINA UNSTABLE
     Dosage: TOOK ORALLY A DOUBLE DOSE OF TICAGRELOR TABLETS 180 MG
     Route: 048
     Dates: start: 20200801, end: 20200802

REACTIONS (3)
  - Suffocation feeling [Recovering/Resolving]
  - Extra dose administered [Recovered/Resolved]
  - Insomnia [Recovering/Resolving]

NARRATIVE: CASE EVENT DATE: 20200801
